FAERS Safety Report 15113286 (Version 1)
Quarter: 2018Q3

REPORT INFORMATION
  Report Type: Spontaneous
  Country: US (occurrence: US)
  Receive Date: 20180706
  Receipt Date: 20180706
  Transmission Date: 20181010
  Serious: No
  Sender: FDA-Public Use
  Company Number: US-GLENMARK PHARMACEUTICALS-2018GMK035256

PATIENT

DRUGS (2)
  1. IMIQUIMOD. [Suspect]
     Active Substance: IMIQUIMOD
     Indication: SKIN CANCER
     Dosage: THRICE A WEEK
     Route: 065
     Dates: start: 201804
  2. IMIQUIMOD. [Suspect]
     Active Substance: IMIQUIMOD
     Indication: PROPHYLAXIS
     Dosage: TWICE A WEEK

REACTIONS (8)
  - Application site pain [Recovering/Resolving]
  - Application site rash [Recovering/Resolving]
  - Application site discharge [Recovering/Resolving]
  - Application site irritation [Recovering/Resolving]
  - Malaise [Recovering/Resolving]
  - Intentional product misuse [Unknown]
  - Product use in unapproved indication [Unknown]
  - Application site pruritus [Recovering/Resolving]
